FAERS Safety Report 13655457 (Version 1)
Quarter: 2017Q2

REPORT INFORMATION
  Report Type: Spontaneous
  Country: US (occurrence: US)
  Receive Date: 20170614
  Receipt Date: 20170614
  Transmission Date: 20170830
  Serious: Yes (Hospitalization)
  Sender: FDA-Public Use
  Company Number: None

PATIENT
  Age: 62 Year
  Sex: Male
  Weight: 74.5 kg

DRUGS (1)
  1. LEDIPASVIR/SOFOSUVIR [Suspect]
     Active Substance: LEDIPASVIR\SOFOSBUVIR
     Indication: HEPATITIS C
     Dosage: 90/400MG EVERY DAY PO
     Route: 048
     Dates: start: 20161121, end: 20161125

REACTIONS (10)
  - Fall [None]
  - Somnolence [None]
  - Asthenia [None]
  - Nausea [None]
  - Fatigue [None]
  - Therapy cessation [None]
  - Headache [None]
  - Head injury [None]
  - Loss of consciousness [None]
  - Subarachnoid haemorrhage [None]

NARRATIVE: CASE EVENT DATE: 20161124
